FAERS Safety Report 13541754 (Version 1)
Quarter: 2017Q2

REPORT INFORMATION
  Report Type: Spontaneous
  Country: IN (occurrence: IN)
  Receive Date: 20170512
  Receipt Date: 20170512
  Transmission Date: 20170830
  Serious: Yes (Death, Other)
  Sender: FDA-Public Use
  Company Number: IN-EDENBRIDGE PHARMACEUTICALS, LLC-IN-2017EDE000049

PATIENT

DRUGS (3)
  1. THYMOGLOBULIN [Suspect]
     Active Substance: LAPINE T-LYMPHOCYTE IMMUNE GLOBULIN
     Indication: IMMUNOSUPPRESSION
     Dosage: UNK
  2. PREDNISOLONE SODIUM PHOSPHATE. [Suspect]
     Active Substance: PREDNISOLONE SODIUM PHOSPHATE
     Indication: IMMUNOSUPPRESSION
     Dosage: UNK
  3. MYCOPHENOLATE [Suspect]
     Active Substance: MYCOPHENOLIC ACID
     Indication: IMMUNOSUPPRESSION
     Dosage: UNK

REACTIONS (2)
  - Septic shock [Fatal]
  - Mucormycosis [Unknown]
